FAERS Safety Report 4302031-9 (Version None)
Quarter: 2004Q1

REPORT INFORMATION
  Report Type: 
  Country: None (occurrence: None)
  Receive Date: 20040223
  Receipt Date: 20021230
  Transmission Date: 20041129
  Serious: Yes (Death, Life-Threatening, Hospitalization)
  Sender: FDA-Public Use
  Company Number: MX-ROCHE-328247

PATIENT
  Age: 23 Year
  Sex: Male
  Weight: 61.5 kg

DRUGS (8)
  1. DACLIZUMAB [Suspect]
     Route: 042
     Dates: start: 20020725, end: 20020725
  2. DACLIZUMAB [Suspect]
     Dosage: FOR FOUR DOSES
     Route: 042
     Dates: start: 20020808, end: 20020919
  3. MYCOPHENOLATE MOFETIL [Suspect]
     Route: 048
     Dates: start: 20020724, end: 20030123
  4. NEORAL [Concomitant]
     Dates: start: 20020727, end: 20030123
  5. CEFTAZIDIME [Concomitant]
     Dates: start: 20030120, end: 20030125
  6. PREDNISONE [Concomitant]
     Dates: start: 20020729, end: 20030123
  7. PRAZOSIN HCL [Concomitant]
     Dates: start: 20020728, end: 20030123
  8. VERAPAMIL [Concomitant]
     Dates: start: 20020727, end: 20030123

REACTIONS (6)
  - ABDOMINAL DISTENSION [None]
  - ABDOMINAL PAIN [None]
  - CYTOMEGALOVIRUS INFECTION [None]
  - DIARRHOEA [None]
  - INTESTINAL PERFORATION [None]
  - SEPTIC SHOCK [None]
